FAERS Safety Report 15276776 (Version 1)
Quarter: 2018Q3

REPORT INFORMATION
  Report Type: Spontaneous
  Country: BR (occurrence: BR)
  Receive Date: 20180814
  Receipt Date: 20180814
  Transmission Date: 20181010
  Serious: Yes (Other)
  Sender: FDA-Public Use
  Company Number: BR-PFIZER INC-2018323043

PATIENT
  Age: 45 Year
  Sex: Male

DRUGS (1)
  1. FRONTAL [Suspect]
     Active Substance: ALPRAZOLAM

REACTIONS (3)
  - Prescription drug used without a prescription [Unknown]
  - Deafness transitory [Unknown]
  - Intentional product misuse [Unknown]
